FAERS Safety Report 6945432-2 (Version None)
Quarter: 2010Q3

REPORT INFORMATION
  Report Type: 
  Country: None (occurrence: None)
  Receive Date: 20100827
  Receipt Date: 20100817
  Transmission Date: 20110219
  Serious: Yes (Other)
  Sender: FDA-Public Use
  Company Number: US-PFIZER INC-2010104480

PATIENT
  Sex: Female
  Weight: 73.48 kg

DRUGS (3)
  1. NEURONTIN [Suspect]
     Indication: NEURALGIA
     Dosage: UNK
     Dates: start: 20100501
  2. DARVOCET [Concomitant]
     Dosage: UNK
     Dates: start: 20100101
  3. TRAZODONE [Concomitant]
     Dosage: UNK

REACTIONS (2)
  - HYPERPHAGIA [None]
  - WEIGHT INCREASED [None]
